FAERS Safety Report 8897496 (Version 1)
Quarter: 2012Q4

REPORT INFORMATION
  Report Type: 
  Country: US (occurrence: US)
  Receive Date: 20121108
  Receipt Date: 20121108
  Transmission Date: 20130627
  Serious: No
  Sender: FDA-Public Use
  Company Number: US-AMGEN-USASP2012025748

PATIENT
  Sex: Female

DRUGS (8)
  1. ENBREL [Suspect]
     Indication: RHEUMATOID ARTHRITIS
     Dosage: 50 mg, qwk
  2. PREDNISONE [Concomitant]
     Dosage: UNK UNK, 2 times/wk
  3. FOLIC ACID [Concomitant]
     Dosage: UNK UNK, qwk
  4. MICARDIS [Concomitant]
     Dosage: UNK UNK, qd
  5. VITAMIN B12                        /00056201/ [Concomitant]
     Dosage: UNK
  6. LOESTRIN FE [Concomitant]
     Dosage: UNK, qd
  7. MULTIVITAMIN                       /00097801/ [Concomitant]
  8. IRON [Concomitant]

REACTIONS (1)
  - Urinary tract infection [Unknown]
